FAERS Safety Report 9461497 (Version 3)
Quarter: 2014Q1

REPORT INFORMATION
  Report Type: Report from Study
  Country: DE (occurrence: DE)
  Receive Date: 20130816
  Receipt Date: 20140113
  Transmission Date: 20141002
  Serious: Yes (Death, Hospitalization)
  Sender: FDA-Public Use
  Company Number: PHHY2013DE074531

PATIENT
  Sex: Male
  Weight: 96 kg

DRUGS (4)
  1. ICL670A [Suspect]
     Indication: MYELODYSPLASTIC SYNDROME
     Dosage: 2000 MG, QD
     Route: 048
     Dates: start: 20120726, end: 20120810
  2. ICL670A [Suspect]
     Dosage: 2000 MG, QD
     Route: 048
     Dates: start: 20121101, end: 20130104
  3. VIDAZA [Concomitant]
     Dosage: 63 MG X 5
  4. KIOVIG [Concomitant]
     Dosage: UNK UKN, UNK

REACTIONS (6)
  - Cardiac failure [Fatal]
  - Oedema [Fatal]
  - Dyspnoea [Fatal]
  - Myelodysplastic syndrome [Fatal]
  - Pancytopenia [Recovered/Resolved]
  - Muscle haemorrhage [Unknown]
